FAERS Safety Report 4390990-8 (Version None)
Quarter: 2004Q2

REPORT INFORMATION
  Report Type: 
  Country: None (occurrence: None)
  Receive Date: 20040621
  Receipt Date: 20031027
  Transmission Date: 20050107
  Serious: Yes (Hospitalization, Other)
  Sender: FDA-Public Use
  Company Number: USA-2003-0010493

PATIENT
  Age: 25 Year
  Sex: Male

DRUGS (4)
  1. OXYCONTIN [Suspect]
     Indication: PAIN
     Dosage: 80 MG, TID, NASAL
     Route: 045
  2. MARIJUANA [Concomitant]
  3. VALIUM [Concomitant]
  4. COCAINE [Concomitant]

REACTIONS (14)
  - ANXIETY [None]
  - DIARRHOEA [None]
  - DRUG ABUSER [None]
  - DRUG DEPENDENCE [None]
  - DRUG TOLERANCE [None]
  - DRUG WITHDRAWAL SYNDROME [None]
  - EUPHORIC MOOD [None]
  - FEELING COLD [None]
  - HOT FLUSH [None]
  - HYPERHIDROSIS [None]
  - INSOMNIA [None]
  - PAIN [None]
  - PAINFUL RESPIRATION [None]
  - SKIN IRRITATION [None]
